FAERS Safety Report 23035753 (Version 2)
Quarter: 2023Q4

REPORT INFORMATION
  Report Type: Spontaneous
  Country: IE (occurrence: IE)
  Receive Date: 20231006
  Receipt Date: 20231011
  Transmission Date: 20240110
  Serious: Yes (Life-Threatening, Hospitalization, Other)
  Sender: FDA-Public Use
  Company Number: IE-HPRA-2023-107564

PATIENT
  Age: 41 Year
  Sex: Female
  Weight: 90 kg

DRUGS (2)
  1. ACETAMINOPHEN [Suspect]
     Active Substance: ACETAMINOPHEN
     Indication: Pain
     Route: 048
     Dates: start: 20230823, end: 20230826
  2. SERTRALINE [Concomitant]
     Active Substance: SERTRALINE HYDROCHLORIDE
     Indication: Depression
     Route: 065

REACTIONS (4)
  - Drug abuse [Unknown]
  - Hepatic failure [Unknown]
  - Shock [Unknown]
  - Overdose [Unknown]

NARRATIVE: CASE EVENT DATE: 20230827
